FAERS Safety Report 5695993-9 (Version None)
Quarter: 2008Q2

REPORT INFORMATION
  Report Type: 
  Country: None (occurrence: None)
  Receive Date: 20080407
  Receipt Date: 20070226
  Transmission Date: 20081010
  Serious: No
  Sender: FDA-Public Use
  Company Number: US-MERCK-0702USA04448

PATIENT

DRUGS (1)
  1. FOSAMAX [Suspect]
     Route: 048

REACTIONS (1)
  - FEMUR FRACTURE [None]
